FAERS Safety Report 7878795-4 (Version None)
Quarter: 2011Q4

REPORT INFORMATION
  Report Type: 
  Country: None (occurrence: None)
  Receive Date: 20111101
  Receipt Date: 20111101
  Transmission Date: 20120403
  Serious: Yes (Other)
  Sender: FDA-Public Use
  Company Number: HU-ABBOTT-11P-076-0869405-00

PATIENT
  Age: 18 Year
  Sex: Male

DRUGS (6)
  1. BIPERIDEN HYDROCHLORIDE TAB [Suspect]
     Indication: PSYCHOTIC DISORDER
     Route: 065
     Dates: start: 20090701, end: 20091001
  2. OLANZAPINE [Concomitant]
  3. BIPERIDEN HYDROCHLORIDE TAB [Suspect]
     Route: 065
     Dates: end: 20091001
  4. RISPERIDONE [Concomitant]
     Indication: SCHIZOPHRENIA
     Dosage: UP TO 8 MG/DAY
  5. CLONAZEPAM [Concomitant]
     Indication: SCHIZOPHRENIA
     Dosage: UP TO 4 MG/DAY
  6. OLANZAPINE [Suspect]
     Indication: SCHIZOPHRENIA
     Route: 065
     Dates: start: 20090701, end: 20091001

REACTIONS (1)
  - TARDIVE DYSKINESIA [None]
